FAERS Safety Report 9518673 (Version 1)
Quarter: 2013Q3

REPORT INFORMATION
  Report Type: Spontaneous
  Country: JP (occurrence: JP)
  Receive Date: 20130912
  Receipt Date: 20130912
  Transmission Date: 20140515
  Serious: Yes (Other)
  Sender: FDA-Public Use
  Company Number: PHHY2013JP100671

PATIENT
  Age: 87 Year
  Sex: Male

DRUGS (2)
  1. DIOVAN [Suspect]
     Dosage: UNK UKN, UNK
     Route: 048
  2. WARFARIN [Concomitant]
     Dosage: UNK UKN, UNK
     Route: 048

REACTIONS (3)
  - Haematuria [Unknown]
  - Erythema [Unknown]
  - Oedema peripheral [Unknown]
